FAERS Safety Report 9297430 (Version 1)
Quarter: 2013Q2

REPORT INFORMATION
  Report Type: Spontaneous
  Country: US (occurrence: US)
  Receive Date: 20130520
  Receipt Date: 20130520
  Transmission Date: 20140414
  Serious: Yes (Other)
  Sender: FDA-Public Use
  Company Number: US-CELGENEUS-163-21880-13024229

PATIENT
  Age: 72 Year
  Sex: Female

DRUGS (7)
  1. REVLIMID [Suspect]
     Indication: PLASMA CELL MYELOMA
     Dosage: 18.75 MILLIGRAM
     Route: 048
     Dates: start: 20121025
  2. REVLIMID [Suspect]
     Dosage: 18.75 MILLIGRAM
     Route: 048
     Dates: start: 201304
  3. LIPITOR [Concomitant]
     Indication: PRODUCT USED FOR UNKNOWN INDICATION
     Route: 065
  4. UNIFLEX [Concomitant]
     Indication: PRODUCT USED FOR UNKNOWN INDICATION
     Route: 065
  5. FEN-RX [Concomitant]
     Indication: ONYCHOMYCOSIS
     Route: 061
  6. PHILLIP^S COLON HEALTH [Concomitant]
     Indication: PRODUCT USED FOR UNKNOWN INDICATION
     Route: 065
  7. DEXAMETHASONE [Concomitant]
     Indication: PRODUCT USED FOR UNKNOWN INDICATION
     Route: 065

REACTIONS (11)
  - Haemorrhage [Unknown]
  - Stress urinary incontinence [Unknown]
  - Blood cholesterol abnormal [Unknown]
  - Insomnia [Unknown]
  - Contusion [Unknown]
  - Herpes simplex [Unknown]
  - Bronchitis [Unknown]
  - Rash [Unknown]
  - Neuropathy peripheral [Unknown]
  - Bronchitis [Unknown]
  - Fatigue [Unknown]
